FAERS Safety Report 5337771-6 (Version None)
Quarter: 2007Q2

REPORT INFORMATION
  Report Type: 
  Country: None (occurrence: None)
  Receive Date: 20070308
  Receipt Date: 20061130
  Transmission Date: 20071010
  Serious: No
  Sender: FDA-Public Use
  Company Number: 2006-BP-13942BP

PATIENT
  Age: 69 Year
  Sex: Male

DRUGS (2)
  1. SPIRIVA [Suspect]
     Indication: CHRONIC OBSTRUCTIVE PULMONARY DISEASE
     Dosage: 18 MCG (18 MCG, 1 IN 1 D), IH
     Route: 055
     Dates: start: 20051201, end: 20061101
  2. ADVAIR (SERETIDE [Concomitant]

REACTIONS (4)
  - CATARACT [None]
  - HALO VISION [None]
  - PROSTATIC SPECIFIC ANTIGEN INCREASED [None]
  - URINARY RETENTION [None]
